FAERS Safety Report 8045656-X (Version None)
Quarter: 2012Q1

REPORT INFORMATION
  Report Type: 
  Country: None (occurrence: None)
  Receive Date: 20120112
  Receipt Date: 20120112
  Transmission Date: 20120608
  Serious: Yes (Life-Threatening, Hospitalization)
  Sender: FDA-Public Use
  Company Number: None

PATIENT
  Age: 33 Year
  Sex: Female
  Weight: 83.1 kg

DRUGS (1)
  1. DESOGESTREL AND ETHINYL ESTRADIOL [Suspect]
     Indication: ORAL CONTRACEPTION
     Dosage: ONE TABLET DAILY PO
     Route: 048

REACTIONS (5)
  - PULSELESS ELECTRICAL ACTIVITY [None]
  - GENERALISED OEDEMA [None]
  - PULMONARY EMBOLISM [None]
  - HYPOTENSION [None]
  - CARDIAC ARREST [None]
